FAERS Safety Report 8585407-3 (Version None)
Quarter: 2012Q3

REPORT INFORMATION
  Report Type: 
  Country: None (occurrence: None)
  Receive Date: 20120810
  Receipt Date: 20120726
  Transmission Date: 20120928
  Serious: Yes (Hospitalization)
  Sender: FDA-Public Use
  Company Number: US-009507513-1207USA012059

PATIENT

DRUGS (6)
  1. PEGASYS [Suspect]
     Route: 058
  2. COPEGUS [Suspect]
  3. DETURGYLONE [Concomitant]
  4. VICTRELIS [Suspect]
     Dosage: 200 MG, UNK
     Route: 048
  5. CEFPODOXIME PROXETIL [Concomitant]
  6. BRONCHOKOD [Concomitant]

REACTIONS (2)
  - DYSPNOEA EXERTIONAL [None]
  - OEDEMA PERIPHERAL [None]
